FAERS Safety Report 12296608 (Version 1)
Quarter: 2016Q2

REPORT INFORMATION
  Report Type: Spontaneous
  Country: US (occurrence: US)
  Receive Date: 20160422
  Receipt Date: 20160422
  Transmission Date: 20160815
  Serious: Yes (Other)
  Sender: FDA-Public Use
  Company Number: US-PERRIGO-16US015257

PATIENT
  Age: 11 Year
  Sex: Female

DRUGS (1)
  1. LORATADINE. [Suspect]
     Active Substance: LORATADINE
     Indication: PRODUCT USED FOR UNKNOWN INDICATION
     Dosage: 10 MG, SINGLE
     Route: 048
     Dates: start: 20160414, end: 20160414

REACTIONS (5)
  - Swelling face [Not Recovered/Not Resolved]
  - Facial paralysis [Not Recovered/Not Resolved]
  - Pupil fixed [Not Recovered/Not Resolved]
  - Hypoaesthesia [Not Recovered/Not Resolved]
  - Nervousness [Not Recovered/Not Resolved]

NARRATIVE: CASE EVENT DATE: 20160414
